FAERS Safety Report 5187678-2 (Version None)
Quarter: 2006Q4

REPORT INFORMATION
  Report Type: 
  Country: None (occurrence: None)
  Receive Date: 20061214
  Receipt Date: 20061129
  Transmission Date: 20070319
  Serious: Yes (Disabling)
  Sender: FDA-Public Use
  Company Number: 233668

PATIENT
  Age: 61 Year
  Sex: Female
  Weight: 61 kg

DRUGS (9)
  1. HERCEPTIN [Suspect]
     Indication: BREAST CANCER METASTATIC
     Dosage: 2 MG/KG, INTRAVENOUS; SEE IMAGE
     Dates: start: 20060719
  2. FASLODEX [Concomitant]
  3. ACENOCOUMAROL               (ACENOCOUMAROL) [Concomitant]
  4. ALENDRONIC ACID              (ALENDRONIC ACID) [Concomitant]
  5. ENALAPRIL MALEATE AND HYDROCHLOROTHIAZIDE [Concomitant]
  6. METFORMIN HCL [Concomitant]
  7. NEXIUM [Concomitant]
  8. ACETAMINOPHEN [Concomitant]
  9. DEXAMETHASONE TAB [Concomitant]

REACTIONS (6)
  - ABDOMINAL PAIN [None]
  - DIZZINESS [None]
  - DYSPNOEA [None]
  - HYPERAESTHESIA [None]
  - PAIN IN EXTREMITY [None]
  - PAIN OF SKIN [None]
